FAERS Safety Report 13765131 (Version 1)
Quarter: 2017Q3

REPORT INFORMATION
  Report Type: Report from Study
  Country: BR (occurrence: BR)
  Receive Date: 20170718
  Receipt Date: 20170718
  Transmission Date: 20171127
  Serious: Yes (Other)
  Sender: FDA-Public Use
  Company Number: BR-EMD SERONO-8170567

PATIENT
  Age: 31 Year
  Sex: Male

DRUGS (1)
  1. REBIF [Suspect]
     Active Substance: INTERFERON BETA-1A
     Indication: PRODUCT USED FOR UNKNOWN INDICATION
     Route: 058
     Dates: start: 20160714

REACTIONS (4)
  - Pyrexia [Recovered/Resolved]
  - Musculoskeletal disorder [Unknown]
  - Near drowning [Unknown]
  - Joint lock [Unknown]

NARRATIVE: CASE EVENT DATE: 201706
